FAERS Safety Report 5087851-8 (Version None)
Quarter: 2006Q3

REPORT INFORMATION
  Report Type: 
  Country: None (occurrence: None)
  Receive Date: 20060821
  Receipt Date: 20060821
  Transmission Date: 20061208
  Serious: Yes (Hospitalization)
  Sender: FDA-Public Use
  Company Number: None

PATIENT
  Sex: Male
  Weight: 77 kg

DRUGS (2)
  1. FLUDARABINE PHOSPHATE [Suspect]
     Dosage: 240 MG
     Dates: end: 20060804
  2. RITUXIMAB (MOAB C2B8 ANTI CD20, CHIMERIC) [Suspect]
     Dosage: 1332 MG
     Dates: end: 20060804

REACTIONS (4)
  - ANAEMIA [None]
  - CHEST X-RAY ABNORMAL [None]
  - HEADACHE [None]
  - NEUTROPENIA [None]
